FAERS Safety Report 20610915 (Version 1)
Quarter: 2022Q1

REPORT INFORMATION
  Report Type: Spontaneous
  Country: FR (occurrence: FR)
  Receive Date: 20220318
  Receipt Date: 20220318
  Transmission Date: 20220423
  Serious: Yes (Other)
  Sender: FDA-Public Use
  Company Number: FR-GLAXOSMITHKLINE-FR2021EME055448

PATIENT
  Age: 49 Year
  Sex: Female

DRUGS (1)
  1. BENLYSTA [Suspect]
     Active Substance: BELIMUMAB
     Indication: Systemic lupus erythematosus
     Dosage: 200 MG
     Route: 042

REACTIONS (21)
  - Asphyxia [Unknown]
  - Asthenia [Unknown]
  - Arthralgia [Unknown]
  - Back pain [Unknown]
  - Fatigue [Recovering/Resolving]
  - Dizziness [Unknown]
  - Injection site pain [Unknown]
  - Injection site induration [Unknown]
  - Peripheral swelling [Recovered/Resolved]
  - Pain in extremity [Unknown]
  - Limb injury [Unknown]
  - Poor quality sleep [Unknown]
  - Pain [Recovered/Resolved]
  - Erythema [Unknown]
  - Injection site bruising [Unknown]
  - Rosacea [Unknown]
  - Photosensitivity reaction [Unknown]
  - Psoriasis [Unknown]
  - Depression [Recovering/Resolving]
  - Inflammation [Recovering/Resolving]
  - Therapeutic response unexpected [Unknown]

NARRATIVE: CASE EVENT DATE: 20211106
